FAERS Safety Report 4682829-8 (Version None)
Quarter: 2005Q2

REPORT INFORMATION
  Report Type: 
  Country: None (occurrence: None)
  Receive Date: 20050606
  Receipt Date: 20050523
  Transmission Date: 20051028
  Serious: Yes (Hospitalization, Disabling)
  Sender: FDA-Public Use
  Company Number: 2005GB01020

PATIENT
  Age: 76 Year
  Sex: Male

DRUGS (9)
  1. QUETIAPINE [Suspect]
     Route: 048
  2. PRIADEL [Interacting]
     Indication: MANIA
     Dosage: INCREASED TO 600MG
     Route: 048
  3. PRIADEL [Interacting]
     Dosage: INCREASED FROM 400MG
     Route: 048
  4. BENDROFLUAZIDE [Interacting]
     Indication: HYPERTENSION
     Route: 065
  5. OMEPRAZOLE [Concomitant]
     Route: 065
  6. TAMSULOSIN [Concomitant]
     Route: 065
  7. PROSTAP [Concomitant]
     Route: 065
  8. LORAZEPAM [Concomitant]
     Route: 065
     Dates: start: 20050321
  9. ZOPICLONE [Concomitant]
     Route: 065

REACTIONS (6)
  - CEREBROVASCULAR ACCIDENT [None]
  - CONFUSIONAL STATE [None]
  - DRUG INTERACTION [None]
  - FACIAL PARESIS [None]
  - GASTROENTERITIS [None]
  - HEMIPARESIS [None]
